FAERS Safety Report 6735914-0 (Version None)
Quarter: 2010Q2

REPORT INFORMATION
  Report Type: 
  Country: None (occurrence: None)
  Receive Date: 20100521
  Receipt Date: 20100521
  Transmission Date: 20101027
  Serious: Yes (Death, Hospitalization)
  Sender: FDA-Public Use
  Company Number: B0546846A

PATIENT
  Age: 5 Year
  Sex: Male

DRUGS (7)
  1. ZOFRAN [Suspect]
     Indication: VOMITING
     Dosage: 2MG PER DAY
     Route: 060
     Dates: start: 20081102
  2. APIRETAL [Concomitant]
     Route: 065
  3. DALSY [Concomitant]
     Route: 065
  4. CLARITIN [Concomitant]
     Route: 065
  5. CEFTRIAXONA [Concomitant]
     Route: 065
  6. AMOXICILLIN AND CLAVULANATE POTASSIUM [Concomitant]
     Route: 065
  7. LORATADINE [Concomitant]
     Route: 065

REACTIONS (12)
  - ACIDOSIS [None]
  - CARDIAC ARREST [None]
  - DEPRESSED LEVEL OF CONSCIOUSNESS [None]
  - HYPERTHERMIA [None]
  - HYPERTHERMIA MALIGNANT [None]
  - HYPERTONIA [None]
  - MUSCLE RIGIDITY [None]
  - PNEUMONIA [None]
  - PYREXIA [None]
  - SEROTONIN SYNDROME [None]
  - THROMBOSIS [None]
  - VENTRICULAR TACHYCARDIA [None]
